FAERS Safety Report 17932214 (Version 1)
Quarter: 2020Q2

REPORT INFORMATION
  Report Type: Spontaneous
  Country: GB (occurrence: GB)
  Receive Date: 20200623
  Receipt Date: 20200623
  Transmission Date: 20200714
  Serious: Yes (Disabling, Other)
  Sender: FDA-Public Use
  Company Number: NVSC2020GB173497

PATIENT
  Age: 48 Year
  Sex: Female
  Weight: 54.42 kg

DRUGS (2)
  1. METRONIDAZOLE. [Suspect]
     Active Substance: METRONIDAZOLE
     Indication: TOOTH ABSCESS
     Dosage: 400 MG
     Route: 048
     Dates: start: 20200403, end: 20200403
  2. SALVIA OFFICINALIS [Concomitant]
     Indication: HOT FLUSH
     Dosage: UNK
     Route: 065

REACTIONS (12)
  - Cold sweat [Recovered/Resolved]
  - Migraine [Not Recovered/Not Resolved]
  - Hyperhidrosis [Recovered/Resolved]
  - Asthenia [Not Recovered/Not Resolved]
  - Abdominal discomfort [Recovered/Resolved]
  - Dizziness [Recovering/Resolving]
  - Stomatitis [Recovering/Resolving]
  - Vision blurred [Recovering/Resolving]
  - Decreased appetite [Recovered/Resolved]
  - Nausea [Recovered/Resolved]
  - Disorientation [Unknown]
  - Musculoskeletal stiffness [Not Recovered/Not Resolved]

NARRATIVE: CASE EVENT DATE: 20200403
